FAERS Safety Report 8346615-X (Version None)
Quarter: 2012Q2

REPORT INFORMATION
  Report Type: 
  Country: None (occurrence: None)
  Receive Date: 20120509
  Receipt Date: 20120504
  Transmission Date: 20120825
  Serious: Yes (Death, Hospitalization, Other)
  Sender: FDA-Public Use
  Company Number: PHEH2012US007241

PATIENT
  Sex: Female
  Weight: 60.8 kg

DRUGS (6)
  1. COUMADIN [Concomitant]
  2. ZOCOR [Concomitant]
  3. AFINITOR [Suspect]
     Indication: BREAST CANCER METASTATIC
     Dosage: 10 MG,
     Route: 048
     Dates: start: 20111229, end: 20120215
  4. LANOXIN [Concomitant]
  5. AFINITOR [Suspect]
     Dosage: 5 MG, ALTERNATING WITH 10 MG
     Route: 048
     Dates: start: 20120315, end: 20120410
  6. AROMASIN [Concomitant]

REACTIONS (7)
  - HYPERCOAGULATION [None]
  - INTERNATIONAL NORMALISED RATIO INCREASED [None]
  - CEREBRAL HAEMORRHAGE [None]
  - RENAL FAILURE [None]
  - HEPATIC FAILURE [None]
  - GASTROINTESTINAL HAEMORRHAGE [None]
  - COAGULOPATHY [None]
